FAERS Safety Report 6030077-1 (Version None)
Quarter: 2009Q1

REPORT INFORMATION
  Report Type: 
  Country: None (occurrence: None)
  Receive Date: 20090106
  Receipt Date: 20090106
  Transmission Date: 20090719
  Serious: Yes (Other)
  Sender: FDA-Public Use
  Company Number: None

PATIENT
  Age: 57 Year
  Sex: Female
  Weight: 86.1834 kg

DRUGS (1)
  1. TOPAMAX [Suspect]
     Indication: MIGRAINE
     Dosage: 50 MG QD PO
     Route: 048
     Dates: start: 20080615, end: 20080916

REACTIONS (18)
  - ABNORMAL BEHAVIOUR [None]
  - ACTIVITIES OF DAILY LIVING IMPAIRED [None]
  - ANOREXIA [None]
  - ANXIETY [None]
  - CHEST PAIN [None]
  - CRYING [None]
  - DYSPNOEA [None]
  - EATING DISORDER [None]
  - EMOTIONAL DISORDER [None]
  - FEAR OF CROWDED PLACES [None]
  - FEELING ABNORMAL [None]
  - FEELING OF DESPAIR [None]
  - JOB DISSATISFACTION [None]
  - MENTAL DISORDER [None]
  - MIDDLE INSOMNIA [None]
  - PSYCHIATRIC SYMPTOM [None]
  - SLEEP TERROR [None]
  - WEIGHT DECREASED [None]
